FAERS Safety Report 4950924-1 (Version None)
Quarter: 2006Q1

REPORT INFORMATION
  Report Type: 
  Country: None (occurrence: None)
  Receive Date: 20060322
  Receipt Date: 20060317
  Transmission Date: 20060701
  Serious: Yes (Death)
  Sender: FDA-Public Use
  Company Number: CO-BOEHRINGER INGELHEIM PHARMACEUTICALS, INC.-2006-BP-03062CL

PATIENT
  Age: 79 Year
  Sex: Male
  Weight: 63 kg

DRUGS (5)
  1. TIOTROPIUM INHALATION POWDER [Suspect]
     Indication: CHRONIC OBSTRUCTIVE PULMONARY DISEASE
     Route: 055
     Dates: start: 20051101
  2. AMOXICILLIN/SULBACTAM [Concomitant]
  3. FUROCEMIDA (FUROCEMIDE) [Concomitant]
  4. AMINOFINA (AMINOFINE) [Concomitant]
  5. METILPREDNISOLONA [Concomitant]

REACTIONS (3)
  - ACUTE RESPIRATORY FAILURE [None]
  - PNEUMONIA [None]
  - VENTRICULAR ARRHYTHMIA [None]
